FAERS Safety Report 9815657 (Version 2)
Quarter: 2014Q1

REPORT INFORMATION
  Report Type: Spontaneous
  Country: IT (occurrence: IT)
  Receive Date: 20140114
  Receipt Date: 20140117
  Transmission Date: 20141002
  Serious: Yes (Hospitalization)
  Sender: FDA-Public Use
  Company Number: IT-009507513-1401ITA003916

PATIENT
  Age: 77 Year
  Sex: Male

DRUGS (7)
  1. MIRTAZAPINE [Suspect]
     Indication: PRODUCT USED FOR UNKNOWN INDICATION
     Dosage: 1 DF, QD, 1 DOSE UNIT DAILY
     Route: 048
     Dates: start: 20130801
  2. MIRAPEXIN [Suspect]
     Indication: PRODUCT USED FOR UNKNOWN INDICATION
     Dosage: 2 DF, QD,2 DOSE UNIT DAILY
     Route: 048
     Dates: start: 20130801
  3. PIRACETAM [Concomitant]
     Route: 048
  4. BENAZEPRIL HYDROCHLORIDE [Concomitant]
     Dosage: 10 MG, UNK
     Route: 048
  5. LORAZEPAM [Concomitant]
     Route: 048
  6. TAMSULOSIN HYDROCHLORIDE [Concomitant]
     Route: 048
  7. METFORMIN [Concomitant]

REACTIONS (3)
  - Dysarthria [Unknown]
  - Confusional state [Unknown]
  - Hallucination [Unknown]
